FAERS Safety Report 11244417 (Version 1)
Quarter: 2015Q3

REPORT INFORMATION
  Report Type: Spontaneous
  Country: US (occurrence: US)
  Receive Date: 20150707
  Receipt Date: 20150707
  Transmission Date: 20151125
  Serious: Yes (Death, Other)
  Sender: FDA-Public Use
  Company Number: US-CELGENE-163-50794-10070218

PATIENT

DRUGS (6)
  1. VIDAZA [Suspect]
     Active Substance: AZACITIDINE
     Route: 058
  2. VIDAZA [Suspect]
     Active Substance: AZACITIDINE
     Route: 058
  3. VIDAZA [Suspect]
     Active Substance: AZACITIDINE
     Route: 058
  4. VIDAZA [Suspect]
     Active Substance: AZACITIDINE
     Indication: ACUTE MYELOID LEUKAEMIA
     Route: 058
  5. VIDAZA [Suspect]
     Active Substance: AZACITIDINE
     Route: 058
  6. VIDAZA [Suspect]
     Active Substance: AZACITIDINE
     Route: 058

REACTIONS (19)
  - Headache [Unknown]
  - Musculoskeletal pain [Unknown]
  - Constipation [Unknown]
  - Pruritus [Unknown]
  - Injection site reaction [Unknown]
  - Nausea [Unknown]
  - Decreased appetite [Unknown]
  - Clostridium difficile colitis [Unknown]
  - Anaemia [Unknown]
  - Death [Fatal]
  - Rash [Unknown]
  - Pleural effusion [Unknown]
  - Neutropenia [Unknown]
  - Thrombocytopenia [Unknown]
  - Disease recurrence [Unknown]
  - Dizziness [Unknown]
  - Asthenia [Unknown]
  - Fatigue [Unknown]
  - Diarrhoea [Unknown]
